FAERS Safety Report 10173580 (Version 1)
Quarter: 2014Q2

REPORT INFORMATION
  Report Type: Spontaneous
  Country: US (occurrence: None)
  Receive Date: 20140425
  Receipt Date: 20140425
  Transmission Date: 20141212
  Serious: No
  Sender: FDA-Public Use
  Company Number: AP356-00553-SPO-US

PATIENT
  Age: 54 Year
  Sex: Female

DRUGS (2)
  1. BELVIQ (LORCASERIN HYDROCHLORIDE) [Suspect]
     Indication: WEIGHT DECREASED
     Route: 048
     Dates: start: 201403
  2. ALKA SELTZER PLUS [Suspect]
     Route: 048

REACTIONS (2)
  - Chest discomfort [None]
  - Headache [None]
